FAERS Safety Report 8445939 (Version 3)
Quarter: 2014Q3

REPORT INFORMATION
  Report Type: Spontaneous
  Country: US (occurrence: US)
  Receive Date: 20120307
  Receipt Date: 20140709
  Transmission Date: 20150326
  Serious: Yes (Hospitalization, Other)
  Sender: FDA-Public Use
  Company Number: US-ASTRAZENECA-2012SE03845

PATIENT
  Age: 48 Year
  Sex: Female

DRUGS (3)
  1. UNSPECIFIED ANTIBIOTICS [Suspect]
     Active Substance: UNSPECIFIED INGREDIENT
     Indication: ANTIBIOTIC PROPHYLAXIS
     Route: 065
  2. ZOMIG [Suspect]
     Active Substance: ZOLMITRIPTAN
     Indication: MIGRAINE
     Route: 045
  3. ZOMIG [Suspect]
     Active Substance: ZOLMITRIPTAN
     Indication: MIGRAINE
     Route: 048
     Dates: start: 201010

REACTIONS (8)
  - Benign neoplasm [Unknown]
  - Nausea [Unknown]
  - Tension headache [Unknown]
  - Migraine [Unknown]
  - Vomiting [Unknown]
  - Headache [Unknown]
  - Paranasal sinus discomfort [Unknown]
  - Drug dose omission [Unknown]
